FAERS Safety Report 5417399-X (Version None)
Quarter: 2007Q3

REPORT INFORMATION
  Report Type: 
  Country: None (occurrence: None)
  Receive Date: 20070814
  Receipt Date: 20070726
  Transmission Date: 20080115
  Serious: Yes (Other)
  Sender: FDA-Public Use
  Company Number: 2007RR-09019

PATIENT
  Age: 4 Year
  Sex: Female

DRUGS (4)
  1. FLUOXETINE [Suspect]
     Dosage: 5 MG,QD, ORAL
     Route: 048
  2. LINEZOLID [Suspect]
     Dosage: 140 MG, BID, ORAL
     Route: 048
  3. FENTANYL [Concomitant]
  4. DIPHENHYDRAMINE HCL [Concomitant]

REACTIONS (9)
  - AGITATION [None]
  - DRUG INTERACTION [None]
  - DYSKINESIA [None]
  - EYE MOVEMENT DISORDER [None]
  - MYDRIASIS [None]
  - MYOCLONUS [None]
  - NYSTAGMUS [None]
  - RESTLESSNESS [None]
  - SEROTONIN SYNDROME [None]
